FAERS Safety Report 8470503-1 (Version None)
Quarter: 2012Q2

REPORT INFORMATION
  Report Type: 
  Country: None (occurrence: None)
  Receive Date: 20120620
  Receipt Date: 20110915
  Transmission Date: 20120825
  Serious: Yes (Hospitalization, Other)
  Sender: FDA-Public Use
  Company Number: DAV-AE-ACY-11-10

PATIENT
  Age: 65 Year
  Sex: Male

DRUGS (1)
  1. ACYCLOVIR [Suspect]
     Indication: HERPES ZOSTER
     Dosage: 500MG - 800MG 5X/DAY, PO
     Route: 048

REACTIONS (14)
  - COGNITIVE DISORDER [None]
  - GAIT DISTURBANCE [None]
  - RASH PAPULAR [None]
  - BLOOD PRESSURE INCREASED [None]
  - SCAB [None]
  - ERYTHEMA [None]
  - ATAXIA [None]
  - TOXICITY TO VARIOUS AGENTS [None]
  - DIALYSIS [None]
  - CONFUSIONAL STATE [None]
  - DYSARTHRIA [None]
  - MENTAL STATUS CHANGES [None]
  - NYSTAGMUS [None]
  - APHASIA [None]
